FAERS Safety Report 9231973 (Version 2)
Quarter: 2014Q1

REPORT INFORMATION
  Report Type: Report from Study
  Country: BE (occurrence: BE)
  Receive Date: 20130415
  Receipt Date: 20140128
  Transmission Date: 20141002
  Serious: No
  Sender: FDA-Public Use
  Company Number: BE-UCBSA-082112

PATIENT
  Age: 70 Year
  Sex: Male
  Weight: 78.5 kg

DRUGS (3)
  1. LACOSAMIDE [Suspect]
     Indication: EPILEPSY
     Dosage: 2 TABLETS
     Route: 048
     Dates: start: 20121018, end: 20130425
  2. METFORMAX [Concomitant]
     Indication: TYPE 2 DIABETES MELLITUS
     Route: 048
     Dates: start: 20090424
  3. NEUROBION [Concomitant]
     Indication: VITAMIN B12 DEFICIENCY
     Dosage: A AMPOULE IN MORNING
     Route: 030
     Dates: start: 20120702

REACTIONS (3)
  - Syncope [Recovered/Resolved]
  - Conduction disorder [Recovered/Resolved]
  - Sinus bradycardia [Recovered/Resolved]
